FAERS Safety Report 4943450-7 (Version None)
Quarter: 2006Q1

REPORT INFORMATION
  Report Type: 
  Country: None (occurrence: None)
  Receive Date: 20060309
  Receipt Date: 20060224
  Transmission Date: 20060701
  Serious: Yes (Hospitalization, Other)
  Sender: FDA-Public Use
  Company Number: 2006028037

PATIENT
  Age: 67 Year
  Sex: Male
  Weight: 99.7913 kg

DRUGS (11)
  1. VIAGRA [Suspect]
     Indication: ERECTILE DYSFUNCTION
     Dosage: (50 MG)
     Dates: start: 20040101, end: 20040101
  2. WELLBUTRIN [Concomitant]
  3. DILANTIN [Concomitant]
  4. CELEXA [Concomitant]
     Indication: ERECTILE DYSFUNCTION
     Dosage: (50 MG)
     Dates: start: 20040101, end: 20040101
  5. AVODART [Concomitant]
  6. MAXZIDE [Concomitant]
  7. TAMSULOSIN HCL [Concomitant]
  8. SYNTHROID [Concomitant]
  9. NORVASC [Concomitant]
  10. CELEBREX [Concomitant]
  11. EXCEDRIN EXTRA STRENGTH (ACETYLSALICYLIC ACID, CAFFEINE, PARACETAMOL) [Concomitant]

REACTIONS (2)
  - BRAIN OPERATION [None]
  - DRUG INEFFECTIVE [None]
